FAERS Safety Report 22251664 (Version 1)
Quarter: 2023Q2

REPORT INFORMATION
  Report Type: Report from Study
  Country: US (occurrence: US)
  Receive Date: 20230425
  Receipt Date: 20230425
  Transmission Date: 20230721
  Serious: Yes (Hospitalization)
  Sender: FDA-Public Use
  Company Number: US-BAUSCH-BL-2021-006842

PATIENT
  Age: 69 Year
  Sex: Female

DRUGS (3)
  1. XIFAXAN [Suspect]
     Active Substance: RIFAXIMIN
     Indication: Hepatic encephalopathy
     Dosage: ABOUT 1 YEAR FROM THIS REPORT
     Route: 048
     Dates: start: 2020, end: 202101
  2. XIFAXAN [Suspect]
     Active Substance: RIFAXIMIN
     Route: 048
     Dates: end: 20230408
  3. LACTULOSE [Concomitant]
     Active Substance: LACTULOSE
     Indication: Hepatic encephalopathy
     Dosage: DOES NOT TAKE LACTULOSE ALWAYS. SOMETIMES MISSES DOSES. SUPPOSED TO TAKE IT THREE TIMES A DAY

REACTIONS (7)
  - Hepatic encephalopathy [Unknown]
  - Condition aggravated [Unknown]
  - Hospitalisation [Unknown]
  - Confusional state [Not Recovered/Not Resolved]
  - Memory impairment [Not Recovered/Not Resolved]
  - Fatigue [Unknown]
  - Product use issue [Unknown]

NARRATIVE: CASE EVENT DATE: 20210101
